FAERS Safety Report 15929905 (Version 1)
Quarter: 2019Q1

REPORT INFORMATION
  Report Type: Spontaneous
  Country: US (occurrence: US)
  Receive Date: 20190115
  Receipt Date: 20190115
  Transmission Date: 20190417
  Serious: Yes (Other)
  Sender: FDA-Public Use
  Company Number: None

PATIENT
  Age: 83 Year
  Sex: Male
  Weight: 90.7 kg

DRUGS (2)
  1. HALOPERIDOL. [Suspect]
     Active Substance: HALOPERIDOL
     Indication: AGITATION
     Route: 042
     Dates: start: 20181020, end: 20181020
  2. OLANZAPINE. [Suspect]
     Active Substance: OLANZAPINE
     Route: 030
     Dates: start: 20181020, end: 20181020

REACTIONS (3)
  - Respiratory distress [None]
  - Cerebellar haemorrhage [None]
  - Hallucination [None]

NARRATIVE: CASE EVENT DATE: 20181020
